FAERS Safety Report 17573537 (Version 1)
Quarter: 2020Q1

REPORT INFORMATION
  Report Type: Spontaneous
  Country: FR (occurrence: FR)
  Receive Date: 20200323
  Receipt Date: 20200323
  Transmission Date: 20200409
  Serious: Yes (Other)
  Sender: FDA-Public Use
  Company Number: FR-MYLANLABS-2020M1030082

PATIENT
  Age: 38 Year
  Sex: Female
  Weight: 53 kg

DRUGS (5)
  1. ENDOXAN                            /00021101/ [Concomitant]
     Active Substance: CYCLOPHOSPHAMIDE
     Dosage: 980 MILLIGRAM, Q3W
     Dates: start: 20191107, end: 20200109
  2. COMPLEMENT [Suspect]
     Active Substance: NAPROXEN SODIUM
     Indication: PRODUCT USED FOR UNKNOWN INDICATION
     Dosage: UNK
     Dates: end: 20200206
  3. PACLITAXEL. [Suspect]
     Active Substance: PACLITAXEL
     Indication: BREAST CANCER
     Dosage: 126 MILLIGRAM, QD
     Route: 042
     Dates: start: 20200130
  4. TRASTUZUMAB. [Suspect]
     Active Substance: TRASTUZUMAB
     Indication: BREAST CANCER
     Dosage: 420 MILLIGRAM, QD
     Route: 042
     Dates: start: 20200130
  5. DOXORUBICINE                       /00330901/ [Concomitant]
     Active Substance: DOXORUBICIN
     Dosage: 98 MILLIGRAM, Q3W
     Route: 042
     Dates: start: 20191107, end: 20200109

REACTIONS (1)
  - Hepatocellular injury [Not Recovered/Not Resolved]

NARRATIVE: CASE EVENT DATE: 20200205
